FAERS Safety Report 5464970-5 (Version None)
Quarter: 2007Q3

REPORT INFORMATION
  Report Type: 
  Country: None (occurrence: None)
  Receive Date: 20070820
  Receipt Date: 20070301
  Transmission Date: 20080115
  Serious: No
  Sender: FDA-Public Use
  Company Number: TPA2007A01363

PATIENT
  Sex: Female

DRUGS (1)
  1. ROZEREM [Suspect]
     Dosage: 8 MG, ONCE, PER ORAL
     Route: 048
     Dates: start: 20070301, end: 20070301

REACTIONS (1)
  - NIGHTMARE [None]
